FAERS Safety Report 25064070 (Version 5)
Quarter: 2025Q4

REPORT INFORMATION
  Report Type: Report from Study
  Country: GB (occurrence: None)
  Receive Date: 20250311
  Receipt Date: 20251122
  Transmission Date: 20260118
  Serious: Yes (Other)
  Sender: UCB
  Company Number: GB-UCBSA-2025013945

PATIENT
  Age: 78 Year

DRUGS (1)
  1. CERTOLIZUMAB PEGOL [Suspect]
     Active Substance: CERTOLIZUMAB PEGOL
     Indication: Rheumatoid arthritis
     Dosage: 200 MILLIGRAM, EV 2 WEEKS(QOW)

REACTIONS (8)
  - Fall [Unknown]
  - Hand fracture [Unknown]
  - Road traffic accident [Recovering/Resolving]
  - Chills [Unknown]
  - Gastroenteritis viral [Unknown]
  - Confusional state [Unknown]
  - Illness [Unknown]
  - Product dose omission in error [Unknown]
